FAERS Safety Report 10262303 (Version 1)
Quarter: 2014Q2

REPORT INFORMATION
  Report Type: Spontaneous
  Country: US (occurrence: None)
  Receive Date: 20140624
  Receipt Date: 20140624
  Transmission Date: 20141212
  Serious: Yes (Disabling, Other)
  Sender: FDA-Public Use
  Company Number: None

PATIENT
  Age: 79 Year
  Sex: Male
  Weight: 92.99 kg

DRUGS (10)
  1. LEVOFLOXACIN [Suspect]
     Indication: PNEUMONIA
     Dosage: 10 TABLETS, BID, ORALLY
     Route: 048
     Dates: start: 2014, end: 20140505
  2. TRAMADOL [Concomitant]
  3. TAMSULOSIN [Concomitant]
  4. FLUDROCRORT [Concomitant]
  5. MONTELUCAST [Concomitant]
  6. DILTRAZEM [Concomitant]
  7. SYMBICORT [Concomitant]
  8. SPRIVA [Concomitant]
  9. VITAMIN D [Concomitant]
  10. LATEIN [Concomitant]

REACTIONS (4)
  - Pain in extremity [None]
  - Musculoskeletal stiffness [None]
  - Peripheral swelling [None]
  - Paraesthesia [None]
